FAERS Safety Report 5563335-5 (Version None)
Quarter: 2007Q4

REPORT INFORMATION
  Report Type: 
  Country: None (occurrence: None)
  Receive Date: 20071217
  Receipt Date: 20071206
  Transmission Date: 20080405
  Serious: Yes (Other)
  Sender: FDA-Public Use
  Company Number: FR-AMGEN-US232067

PATIENT
  Sex: Female

DRUGS (2)
  1. ENBREL [Suspect]
     Indication: ANKYLOSING SPONDYLITIS
     Route: 058
     Dates: start: 20060101, end: 20070601
  2. DI-ANTALVIC [Concomitant]
     Dosage: UP TO 6 DOSES TOTAL DAILY
     Route: 048

REACTIONS (3)
  - ASTHENIA [None]
  - DYSARTHRIA [None]
  - MALAISE [None]
